FAERS Safety Report 23653287 (Version 1)
Quarter: 2024Q1

REPORT INFORMATION
  Report Type: Spontaneous
  Country: JP (occurrence: JP)
  Receive Date: 20240320
  Receipt Date: 20240320
  Transmission Date: 20240409
  Serious: Yes (Death, Hospitalization, Other)
  Sender: FDA-Public Use
  Company Number: JP-PFIZER INC-PV202400037005

PATIENT
  Age: 60 Year
  Sex: Male

DRUGS (20)
  1. VFEND [Suspect]
     Active Substance: VORICONAZOLE
     Indication: Aspergillus infection
     Dosage: 170 MG, 2X/DAY
     Route: 042
     Dates: start: 20231021, end: 20231021
  2. VFEND [Suspect]
     Active Substance: VORICONAZOLE
     Dosage: 170MG, DAILY
     Route: 042
     Dates: start: 20231022, end: 20231026
  3. METHOTREXATE [Suspect]
     Active Substance: METHOTREXATE
     Dosage: 4 MG, TWICE A WEEK
     Route: 048
     Dates: end: 20231026
  4. AMPICILLIN SODIUM\SULBACTAM SODIUM [Concomitant]
     Active Substance: AMPICILLIN SODIUM\SULBACTAM SODIUM
     Dosage: UNK
     Dates: start: 20231016, end: 20231026
  5. ELNEOPA NF NO.1 [Concomitant]
     Dosage: UNK
     Dates: start: 20231026, end: 20231030
  6. IGURATIMOD [Concomitant]
     Active Substance: IGURATIMOD
     Dosage: UNK
  7. VONOPRAZAN FUMARATE [Concomitant]
     Active Substance: VONOPRAZAN FUMARATE
     Dosage: UNK
     Route: 048
  8. AMLODIPINE [Concomitant]
     Active Substance: AMLODIPINE BESYLATE
     Dosage: UNK
  9. AMBROXOL HYDROCHLORIDE [Concomitant]
     Active Substance: AMBROXOL HYDROCHLORIDE
     Dosage: UNK
  10. EPERISONE HCL [Concomitant]
     Dosage: UNK
     Route: 048
  11. LOXOPROFEN SODIUM [Concomitant]
     Active Substance: LOXOPROFEN SODIUM
     Dosage: UNK
     Route: 048
  12. REBAMIPIDE [Concomitant]
     Active Substance: REBAMIPIDE
     Dosage: UNK
     Route: 048
  13. METHYLCOBALAMIN [Concomitant]
     Active Substance: METHYLCOBALAMIN
     Dosage: UNK
     Route: 048
  14. PEMAFIBRATE [Concomitant]
     Active Substance: PEMAFIBRATE
     Dosage: UNK
     Route: 048
  15. BEPOTASTINE BESILATE [Concomitant]
     Active Substance: BEPOTASTINE BESILATE
     Dosage: UNK
     Route: 048
  16. PREDONINE [Concomitant]
     Active Substance: PREDNISOLONE
     Dosage: UNK
     Route: 048
  17. ACETAMINOPHEN\TRAMADOL HYDROCHLORIDE [Concomitant]
     Active Substance: ACETAMINOPHEN\TRAMADOL HYDROCHLORIDE
     Dosage: UNK
     Route: 048
  18. FOLIC ACID [Concomitant]
     Active Substance: FOLIC ACID
     Dosage: UNK
     Route: 048
  19. POTASSIUM ASPARTATE [Concomitant]
     Active Substance: POTASSIUM ASPARTATE
     Dosage: UNK
     Route: 048
  20. METOCLOPRAMIDE [Concomitant]
     Active Substance: METOCLOPRAMIDE
     Dosage: UNK
     Route: 048

REACTIONS (7)
  - Condition aggravated [Fatal]
  - Myelosuppression [Recovering/Resolving]
  - Nausea [Unknown]
  - Pyrexia [Unknown]
  - Blood potassium decreased [Unknown]
  - Decreased appetite [Unknown]
  - Stomatitis [Unknown]

NARRATIVE: CASE EVENT DATE: 20231023
